FAERS Safety Report 10375560 (Version 1)
Quarter: 2014Q3

REPORT INFORMATION
  Report Type: Spontaneous
  Country: US (occurrence: US)
  Receive Date: 20140811
  Receipt Date: 20140811
  Transmission Date: 20150326
  Serious: No
  Sender: FDA-Public Use
  Company Number: US-ASTRAZENECA-2014SE55912

PATIENT
  Age: 54 Year
  Sex: Female
  Weight: 32.2 kg

DRUGS (5)
  1. IPRATROPIUM BROMIDE. [Concomitant]
     Active Substance: IPRATROPIUM BROMIDE
     Route: 055
  2. VENTOLIN RESCUE INHALER [Concomitant]
     Indication: ASTHMA
     Dosage: UNKNOWN PRN
     Route: 055
  3. PULMICORT RESPULES [Suspect]
     Active Substance: BUDESONIDE
     Indication: ASTHMA
     Dosage: 1 MG PER 2 ML BID
     Route: 055
  4. PERFORMAMIST [Concomitant]
     Indication: RESPIRATORY DISORDER
     Dosage: 20 MCG BID
     Route: 055
  5. PULMICORT RESPULES [Suspect]
     Active Substance: BUDESONIDE
     Indication: CHRONIC OBSTRUCTIVE PULMONARY DISEASE
     Dosage: 1 MG PER 2 ML BID
     Route: 055

REACTIONS (2)
  - Vocal cord disorder [Unknown]
  - Cough [Unknown]
